FAERS Safety Report 8211595-4 (Version None)
Quarter: 2012Q2

REPORT INFORMATION
  Report Type: 
  Country: None (occurrence: None)
  Receive Date: 20120229
  Receipt Date: 20110920
  Transmission Date: 20120825
  Serious: Yes (Life-Threatening, Hospitalization, Disabling)
  Sender: FDA-Public Use
  Company Number: US-JNJFOC-20090200297

PATIENT
  Age: 4 Year
  Sex: Female
  Weight: 22.2263 kg

DRUGS (2)
  1. CHILDREN'S TYLENOL SUSPENSION [Suspect]
     Indication: PAIN
  2. CHILDREN'S MOTRIN [Suspect]
     Indication: PAIN

REACTIONS (2)
  - BLINDNESS [None]
  - TOXIC EPIDERMAL NECROLYSIS [None]
